FAERS Safety Report 8278054-4 (Version None)
Quarter: 2012Q2

REPORT INFORMATION
  Report Type: 
  Country: None (occurrence: None)
  Receive Date: 20120412
  Receipt Date: 20120404
  Transmission Date: 20120825
  Serious: Yes (Other)
  Sender: FDA-Public Use
  Company Number: US-FRI-1000028815

PATIENT
  Age: 74 Year
  Sex: Female

DRUGS (6)
  1. VIIBRYD [Suspect]
     Indication: NERVOUSNESS
     Dosage: 10 MG
     Dates: start: 20120101, end: 20120101
  2. VIIBRYD [Suspect]
     Dosage: 20 MG
     Dates: start: 20120101, end: 20120101
  3. LISINOPRIL [Concomitant]
     Indication: HYPERTENSION
  4. STOMACH MEDICATION (NOS) [Concomitant]
  5. VIIBRYD [Suspect]
     Dosage: 40 MG
     Dates: start: 20120101, end: 20120301
  6. PRAVASTATIN [Concomitant]
     Indication: BLOOD CHOLESTEROL INCREASED

REACTIONS (3)
  - BLOOD PRESSURE INCREASED [None]
  - NERVOUSNESS [None]
  - OFF LABEL USE [None]
